FAERS Safety Report 24718792 (Version 1)
Quarter: 2024Q4

REPORT INFORMATION
  Report Type: Spontaneous
  Country: IS (occurrence: IS)
  Receive Date: 20241210
  Receipt Date: 20241210
  Transmission Date: 20250115
  Serious: Yes (Death)
  Sender: MYLAN
  Company Number: None

PATIENT
  Sex: Male

DRUGS (4)
  1. BUPRENORPHINE [Suspect]
     Active Substance: BUPRENORPHINE
     Indication: Product used for unknown indication
     Dosage: UNK
     Route: 065
  2. OXYCODONE [Suspect]
     Active Substance: OXYCODONE
     Indication: Product used for unknown indication
     Dosage: UNK
     Route: 065
  3. ETIZOLAM [Suspect]
     Active Substance: ETIZOLAM
     Indication: Product used for unknown indication
     Dosage: UNK
     Route: 065
  4. CHLORDIAZEPOXIDE [Suspect]
     Active Substance: CHLORDIAZEPOXIDE
     Indication: Product used for unknown indication
     Dosage: UNK
     Route: 065

REACTIONS (1)
  - Toxicity to various agents [Fatal]

NARRATIVE: CASE EVENT DATE: 20230101
